FAERS Safety Report 9434442 (Version 1)
Quarter: 2013Q3

REPORT INFORMATION
  Report Type: Report from Study
  Country: PL (occurrence: PL)
  Receive Date: 20130801
  Receipt Date: 20130801
  Transmission Date: 20140515
  Serious: Yes (Hospitalization)
  Sender: FDA-Public Use
  Company Number: PHHO2013PL008820

PATIENT
  Age: 59 Year
  Sex: Male
  Weight: 85 kg

DRUGS (16)
  1. PARACETAMOL [Suspect]
     Indication: CHEST PAIN
     Dosage: 500 MG, UNK
     Route: 048
     Dates: start: 20130105, end: 20130106
  2. PARACETAMOL [Suspect]
     Indication: NEURALGIA
  3. BLINDED DEB025 [Suspect]
     Indication: HEPATITIS C
     Dosage: CODE NOT BROKEN
     Route: 048
     Dates: start: 20120119, end: 20120418
  4. BLINDED NO TREATMENT RECEIVED [Suspect]
     Indication: HEPATITIS C
     Dosage: CODE NOT BROKEN
     Route: 048
     Dates: start: 20120119, end: 20120418
  5. BLINDED PLACEBO [Suspect]
     Indication: HEPATITIS C
     Dosage: CODE NOT BROKEN
     Route: 048
     Dates: start: 20120119, end: 20120418
  6. COMPARATOR RIBAVIRIN [Suspect]
     Indication: HEPATITIS C
     Dosage: 1200 UG, UNK
     Dates: start: 20120119, end: 20121219
  7. COMPARATOR PEGASYS [Suspect]
     Indication: HEPATITIS C
     Dosage: 180 UG, UNK
     Dates: start: 20120119, end: 20121213
  8. PYRALGIN [Suspect]
     Indication: CHEST PAIN
     Dosage: 500 MG, UNK
     Route: 048
     Dates: start: 20130106, end: 20130106
  9. PYRALGIN [Suspect]
     Indication: NEURALGIA
     Dosage: 500 MG, BID
     Route: 048
     Dates: start: 20130107, end: 20130107
  10. PYRALGIN [Suspect]
     Dosage: 500 MG, BID
     Route: 048
     Dates: start: 20130108, end: 20130108
  11. KETONAL [Suspect]
     Indication: CHEST PAIN
     Dosage: 100 MG, UNK
     Route: 030
     Dates: start: 20130107, end: 20130107
  12. KETONAL [Suspect]
     Indication: NEURALGIA
  13. AULIN [Suspect]
     Indication: CHEST PAIN
     Dosage: 100 MG
     Route: 048
     Dates: start: 20130108, end: 20130108
  14. AULIN [Suspect]
     Indication: NEURALGIA
  15. OLFEN [Suspect]
     Indication: CHEST PAIN
     Dosage: 75 MG, UNK
     Route: 030
     Dates: start: 20130108, end: 20130108
  16. OLFEN [Suspect]
     Indication: NEURALGIA

REACTIONS (8)
  - Mania [Recovered/Resolved]
  - Chest pain [None]
  - Upper respiratory tract infection [None]
  - Psychotic disorder [None]
  - Abnormal behaviour [None]
  - Overdose [None]
  - Refusal of treatment by patient [None]
  - Neuralgia [None]
